FAERS Safety Report 5245425-X (Version None)
Quarter: 2007Q1

REPORT INFORMATION
  Report Type: 
  Country: None (occurrence: None)
  Receive Date: 20070223
  Receipt Date: 20070214
  Transmission Date: 20070707
  Serious: Yes (Hospitalization)
  Sender: FDA-Public Use
  Company Number: HQWYE940130NOV06

PATIENT
  Age: 48 Year
  Sex: Female

DRUGS (4)
  1. MYLOTARG [Suspect]
     Indication: ACUTE MYELOID LEUKAEMIA
     Dosage: DOSE NOT PROVIDED
     Dates: start: 20040501, end: 20040101
  2. PREVACID [Concomitant]
     Indication: PROPHYLAXIS
     Route: 048
  3. PAXIL [Concomitant]
     Indication: DEPRESSION
     Route: 048
  4. OXYCONTIN [Concomitant]
     Indication: PAIN
     Dosage: 30 OR 40 MG EVERY 8 HOURS
     Route: 048

REACTIONS (7)
  - CHOLELITHIASIS [None]
  - CONDITION AGGRAVATED [None]
  - DIZZINESS [None]
  - FATIGUE [None]
  - PLATELET AGGREGATION [None]
  - PLATELET COUNT DECREASED [None]
  - TRANSIENT ISCHAEMIC ATTACK [None]
